FAERS Safety Report 7411934-8 (Version None)
Quarter: 2011Q2

REPORT INFORMATION
  Report Type: 
  Country: None (occurrence: None)
  Receive Date: 20110408
  Receipt Date: 20110408
  Transmission Date: 20111010
  Serious: Yes (Hospitalization)
  Sender: FDA-Public Use
  Company Number: None

PATIENT
  Age: 66 Year
  Sex: Male
  Weight: 58 kg

DRUGS (2)
  1. TACROLIMUS [Suspect]
     Indication: IMMUNOSUPPRESSION
     Dosage: 1.5MG BID PO
     Route: 048
     Dates: start: 20110208, end: 20110401
  2. TACROLIMUS [Suspect]
     Indication: RENAL TRANSPLANT
     Dosage: 1.5MG BID PO
     Route: 048
     Dates: start: 20110208, end: 20110401

REACTIONS (3)
  - HYPOPHAGIA [None]
  - DIARRHOEA [None]
  - WEIGHT DECREASED [None]
